FAERS Safety Report 15262597 (Version 1)
Quarter: 2018Q3

REPORT INFORMATION
  Report Type: Spontaneous
  Country: AR (occurrence: AR)
  Receive Date: 20180809
  Receipt Date: 20180809
  Transmission Date: 20181010
  Serious: Yes (Hospitalization)
  Sender: FDA-Public Use
  Company Number: PHHY2018AR067265

PATIENT
  Age: 78 Year
  Sex: Female

DRUGS (2)
  1. EXFORGE [Suspect]
     Active Substance: AMLODIPINE BESYLATE\VALSARTAN
     Dosage: 0.5 DF, QD  (160/10/25)
     Route: 065
     Dates: start: 2017
  2. EXFORGE [Suspect]
     Active Substance: AMLODIPINE BESYLATE\VALSARTAN
     Indication: HYPERTENSION
     Dosage: UNK
     Route: 065
     Dates: end: 201702

REACTIONS (8)
  - Infection [Unknown]
  - Pruritus [Recovering/Resolving]
  - Wrong technique in product usage process [Recovering/Resolving]
  - Seizure [Recovering/Resolving]
  - Skin reaction [Recovering/Resolving]
  - Haemorrhage [Unknown]
  - Diabetes mellitus [Unknown]
  - Scratch [Unknown]

NARRATIVE: CASE EVENT DATE: 201702
